FAERS Safety Report 8935269 (Version 2)
Quarter: 2019Q1

REPORT INFORMATION
  Report Type: Spontaneous
  Country: US (occurrence: US)
  Receive Date: 20121129
  Receipt Date: 20190322
  Transmission Date: 20190418
  Serious: No
  Sender: FDA-Public Use
  Company Number: US-ASTRAZENECA-2012SE86696

PATIENT
  Age: 834 Month
  Sex: Female
  Weight: 67.1 kg

DRUGS (5)
  1. TUDORZA PRESSAIR [Suspect]
     Active Substance: ACLIDINIUM BROMIDE
     Indication: CHRONIC OBSTRUCTIVE PULMONARY DISEASE
     Dosage: 400 MCGS, ONE PUFF TWICE DAILY
     Route: 055
     Dates: start: 201811
  2. SPIRIVA [Concomitant]
     Active Substance: TIOTROPIUM BROMIDE MONOHYDRATE
     Indication: CHRONIC OBSTRUCTIVE PULMONARY DISEASE
  3. TUDORZA PRESSAIR [Suspect]
     Active Substance: ACLIDINIUM BROMIDE
     Indication: EMPHYSEMA
     Dosage: 400 MCGS, ONE PUFF TWICE DAILY
     Route: 055
     Dates: start: 201811
  4. SYMBICORT [Suspect]
     Active Substance: BUDESONIDE\FORMOTEROL FUMARATE DIHYDRATE
     Indication: CHRONIC OBSTRUCTIVE PULMONARY DISEASE
     Dosage: 160/4.5 MCG 2 PUFFS,TWO TIMES A DAY
     Route: 055
     Dates: start: 200904
  5. VESICARE [Concomitant]
     Active Substance: SOLIFENACIN SUCCINATE
     Indication: BLADDER DISORDER

REACTIONS (5)
  - Product dose omission [Unknown]
  - Dyspnoea [Unknown]
  - Pulmonary function test abnormal [Unknown]
  - Device malfunction [Unknown]
  - Arthritis [Unknown]

NARRATIVE: CASE EVENT DATE: 201209
